FAERS Safety Report 6415963-2 (Version None)
Quarter: 2009Q4

REPORT INFORMATION
  Report Type: 
  Country: None (occurrence: None)
  Receive Date: 20091027
  Receipt Date: 20091021
  Transmission Date: 20100525
  Serious: Yes (Hospitalization)
  Sender: FDA-Public Use
  Company Number: B0599525A

PATIENT
  Sex: Male
  Weight: 22 kg

DRUGS (2)
  1. AMOXICILLIN TRIHYDRATE [Suspect]
     Indication: TONSILLITIS
     Dosage: 500MG TWICE PER DAY
     Route: 048
     Dates: start: 20090921, end: 20090923
  2. MEGAMYLASE [Suspect]
     Indication: TONSILLITIS
     Route: 048
     Dates: start: 20090921, end: 20090923

REACTIONS (2)
  - INFLAMMATION [None]
  - RASH PUSTULAR [None]
